FAERS Safety Report 6317455-8 (Version None)
Quarter: 2009Q3

REPORT INFORMATION
  Report Type: 
  Country: None (occurrence: None)
  Receive Date: 20090821
  Receipt Date: 20090814
  Transmission Date: 20100115
  Serious: Yes (Other)
  Sender: FDA-Public Use
  Company Number: US-JNJFOC-20090805569

PATIENT
  Sex: Female
  Weight: 58.97 kg

DRUGS (3)
  1. TYLENOL W/ CODEINE NO. 3 [Suspect]
     Indication: PAIN
     Route: 048
  2. TRAMADOL [Concomitant]
     Indication: PAIN
     Route: 048
  3. CYMBALTA [Concomitant]
     Indication: DEPRESSION
     Route: 048

REACTIONS (3)
  - DEPRESSION [None]
  - DRUG INEFFECTIVE [None]
  - DRUG SCREEN POSITIVE [None]
